FAERS Safety Report 9427851 (Version 1)
Quarter: 2013Q3

REPORT INFORMATION
  Report Type: Spontaneous
  Country: US (occurrence: US)
  Receive Date: 20130730
  Receipt Date: 20130730
  Transmission Date: 20140515
  Serious: No
  Sender: FDA-Public Use
  Company Number: US-ABBOTT-12P-163-0989243-00

PATIENT
  Sex: Female
  Weight: 51.76 kg

DRUGS (2)
  1. NIASPAN (COATED) [Suspect]
     Indication: BLOOD CHOLESTEROL INCREASED
     Route: 048
     Dates: start: 2007, end: 201209
  2. CYTOMEL [Concomitant]
     Indication: HYPOTHYROIDISM

REACTIONS (12)
  - Musculoskeletal pain [Not Recovered/Not Resolved]
  - Chest discomfort [Recovered/Resolved]
  - Dyspnoea [Recovered/Resolved]
  - Myalgia [Not Recovered/Not Resolved]
  - Blood potassium increased [Recovered/Resolved]
  - Muscular weakness [Recovered/Resolved]
  - Choking [Recovered/Resolved]
  - Fall [Recovered/Resolved]
  - Wheezing [Recovered/Resolved]
  - Rhinorrhoea [Not Recovered/Not Resolved]
  - Back pain [Not Recovered/Not Resolved]
  - Blood cholesterol increased [Unknown]
